FAERS Safety Report 9886639 (Version 1)
Quarter: 2014Q1

REPORT INFORMATION
  Report Type: Spontaneous
  Country: IT (occurrence: IT)
  Receive Date: 20140210
  Receipt Date: 20140210
  Transmission Date: 20141002
  Serious: Yes (Hospitalization)
  Sender: FDA-Public Use
  Company Number: PHHY2014IT013423

PATIENT
  Age: 53 Year
  Sex: Female

DRUGS (3)
  1. EPIRUBICIN [Suspect]
     Indication: BREAST CANCER
     Dosage: 110 MG, CYCLIC
     Route: 042
     Dates: start: 20131108, end: 20131129
  2. CYCLOPHOSPHAMIDE [Suspect]
     Indication: BREAST CANCER
     Dosage: 800 MG, CYCLIC
     Route: 042
     Dates: start: 20131108, end: 20131129
  3. FLUOROURACIL [Suspect]
     Indication: BREAST CANCER
     Dosage: 800 MG, CYCLIC
     Route: 042
     Dates: start: 20131108, end: 20131129

REACTIONS (5)
  - Drug-induced liver injury [Recovered/Resolved]
  - Chromaturia [Recovered/Resolved]
  - Asthenia [Recovered/Resolved]
  - Nausea [Recovered/Resolved]
  - Pruritus [Recovered/Resolved]
